FAERS Safety Report 24608851 (Version 4)
Quarter: 2025Q1

REPORT INFORMATION
  Report Type: Report from Study
  Country: US (occurrence: US)
  Receive Date: 20241112
  Receipt Date: 20250208
  Transmission Date: 20250409
  Serious: Yes (Death, Hospitalization, Other)
  Sender: ABBVIE
  Company Number: US-ABBVIE-5995669

PATIENT
  Age: 77 Year
  Sex: Male
  Weight: 63.5 kg

DRUGS (5)
  1. RINVOQ [Suspect]
     Active Substance: UPADACITINIB
     Indication: Colitis ulcerative
     Dosage: UNKNOWN
     Route: 048
     Dates: start: 20240606
  2. REMICADE [Concomitant]
     Active Substance: INFLIXIMAB
     Indication: Colitis ulcerative
  3. PREDNISONE [Concomitant]
     Active Substance: PREDNISONE
     Indication: Colitis ulcerative
  4. OMVOH [Concomitant]
     Active Substance: MIRIKIZUMAB-MRKZ
     Indication: Colitis ulcerative
  5. KEPPRA [Concomitant]
     Active Substance: LEVETIRACETAM
     Indication: Seizure

REACTIONS (8)
  - Multiple organ dysfunction syndrome [Fatal]
  - Colitis ulcerative [Fatal]
  - Coeliac disease [Fatal]
  - Post procedural haemorrhage [Unknown]
  - Pain [Unknown]
  - Intestinal mass [Not Recovered/Not Resolved]
  - Platelet count decreased [Unknown]
  - Pain [Not Recovered/Not Resolved]

NARRATIVE: CASE EVENT DATE: 20240101
